FAERS Safety Report 6091148-7 (Version None)
Quarter: 2009Q1

REPORT INFORMATION
  Report Type: 
  Country: None (occurrence: None)
  Receive Date: 20090220
  Receipt Date: 20090203
  Transmission Date: 20090719
  Serious: No
  Sender: FDA-Public Use
  Company Number: JPI-P-005992

PATIENT
  Age: 50 Year
  Sex: Male

DRUGS (3)
  1. XYREM [Suspect]
     Indication: CATAPLEXY
     Dosage: 9 GM (4.5 GM, 2 IN 1 D) ,ORAL
     Route: 048
     Dates: start: 20080505
  2. XYREM [Suspect]
     Indication: NARCOLEPSY
     Dosage: 9 GM (4.5 GM, 2 IN 1 D) ,ORAL
     Route: 048
     Dates: start: 20080505
  3. METHYLPHENIDATE HCL [Concomitant]

REACTIONS (4)
  - AGGRESSION [None]
  - RAPID EYE MOVEMENTS SLEEP ABNORMAL [None]
  - SLEEP TALKING [None]
  - SOMNOLENCE [None]
